FAERS Safety Report 4840222-9 (Version None)
Quarter: 2005Q4

REPORT INFORMATION
  Report Type: 
  Country: None (occurrence: None)
  Receive Date: 20051129
  Receipt Date: 20051122
  Transmission Date: 20060501
  Serious: Yes (Disabling)
  Sender: FDA-Public Use
  Company Number: DE-MERCK-0511DEU00144

PATIENT
  Age: 53 Year
  Sex: Male

DRUGS (2)
  1. DALTEPARIN SODIUM [Concomitant]
     Route: 065
  2. VIOXX [Suspect]
     Route: 048
     Dates: start: 20020101, end: 20020101

REACTIONS (1)
  - THROMBOSIS [None]
